FAERS Safety Report 25423928 (Version 1)
Quarter: 2025Q2

REPORT INFORMATION
  Report Type: Spontaneous
  Country: SI (occurrence: SI)
  Receive Date: 20250611
  Receipt Date: 20250611
  Transmission Date: 20250716
  Serious: Yes (Other)
  Sender: BOEHRINGER INGELHEIM
  Company Number: SI-BoehringerIngelheim-2025-BI-076173

PATIENT
  Age: 75 Year
  Sex: Male

DRUGS (1)
  1. OFEV [Suspect]
     Active Substance: NINTEDANIB
     Indication: Idiopathic pulmonary fibrosis
     Dates: start: 202105, end: 202308

REACTIONS (2)
  - Colitis ischaemic [Unknown]
  - Aspergillus infection [Unknown]

NARRATIVE: CASE EVENT DATE: 20230801
